FAERS Safety Report 8835451 (Version 1)
Quarter: 2012Q4

REPORT INFORMATION
  Report Type: 
  Country: CN (occurrence: CN)
  Receive Date: 20121011
  Receipt Date: 20121011
  Transmission Date: 20130627
  Serious: Yes (Death, Other)
  Sender: FDA-Public Use
  Company Number: PHHY2012CN088952

PATIENT
  Age: 42 Year
  Sex: Female

DRUGS (20)
  1. NEORAL [Suspect]
     Indication: PROPHYLAXIS AGAINST GRAFT VERSUS HOST DISEASE
     Dosage: 2.5 mg/kg, per day
     Route: 042
  2. NEORAL [Suspect]
     Indication: PROPHYLAXIS AGAINST GRAFT VERSUS HOST DISEASE
     Route: 048
  3. SIMULECT [Suspect]
     Indication: PROPHYLAXIS AGAINST GRAFT VERSUS HOST DISEASE
     Dosage: 20 mg, ONCE/SINGLE
  4. METHOTREXATE [Suspect]
     Indication: PROPHYLAXIS AGAINST GRAFT VERSUS HOST DISEASE
     Dosage: 15 mg/m2, ONCE/SINGLE on day +1
     Route: 042
  5. METHOTREXATE [Suspect]
     Dosage: 10 mg/m2, ONCE/SINGLE on day +3
     Route: 042
  6. METHOTREXATE [Suspect]
     Dosage: 10 mg/m2, ONCE/SINGLE on day +7
     Route: 042
  7. CELLCEPT [Suspect]
     Indication: PROPHYLAXIS AGAINST GRAFT VERSUS HOST DISEASE
     Dosage: 0.5 g, BID
  8. FLUDARABINE [Concomitant]
     Dosage: 30 mg/m2, UNK
  9. BUSULFAN [Concomitant]
     Dosage: 4 mg/kg, per day
     Route: 048
  10. CYCLOPHOSPHAMIDE [Concomitant]
     Dosage: 60 mg/kg, per day
  11. LOMUSTINE [Concomitant]
     Dosage: 200 mg/m2, UNK
     Route: 048
  12. ANTITHYMOCYTE IMMUNOGLOBULIN [Concomitant]
     Dosage: 2.5 mg/kg, per day
     Route: 042
  13. SULFAMETHOXAZOLE [Concomitant]
     Indication: PROPHYLAXIS
  14. FLUCONAZOLE [Concomitant]
     Indication: PROPHYLAXIS
  15. ACYCLOVIR [Concomitant]
     Indication: PROPHYLAXIS
  16. ALPROSTADIL [Concomitant]
     Indication: PROPHYLAXIS
  17. HEPARIN [Concomitant]
     Indication: PROPHYLAXIS
  18. URSODEOXYCHOLIC ACID [Concomitant]
     Indication: PROPHYLAXIS
  19. MESNA [Concomitant]
     Indication: PROPHYLAXIS
  20. FILGRASTIM [Concomitant]

REACTIONS (5)
  - Guillain-Barre syndrome [Fatal]
  - Enteritis [Fatal]
  - Interstitial lung disease [Fatal]
  - Cystitis haemorrhagic [Unknown]
  - Acute graft versus host disease [Recovered/Resolved]
